FAERS Safety Report 8460785-4 (Version None)
Quarter: 2012Q2

REPORT INFORMATION
  Report Type: 
  Country: None (occurrence: None)
  Receive Date: 20120623
  Receipt Date: 20120619
  Transmission Date: 20120825
  Serious: Yes (Death, Hospitalization, Other)
  Sender: FDA-Public Use
  Company Number: SE-TEVA-327925USA

PATIENT
  Sex: Male
  Weight: 81.2 kg

DRUGS (12)
  1. FINASTERIDE [Concomitant]
     Dates: start: 20040101
  2. CITALOPRAM HYDROBROMIDE [Concomitant]
     Dates: start: 20041228
  3. TREANDA [Suspect]
     Route: 042
     Dates: start: 20110909
  4. FUROSEMIDE [Concomitant]
     Dates: start: 20000831
  5. BISOPROLOL [Concomitant]
     Dates: start: 20000831
  6. CANDESARTAN [Concomitant]
     Dates: start: 20000831
  7. CIPROFLOXACIN HYDROCHLORIDE [Concomitant]
     Dates: start: 20120220, end: 20120229
  8. FOLSYRA [Concomitant]
     Dates: start: 20120221
  9. RITUXIMAB [Suspect]
     Dosage: EVERY 4 WEEKS
     Route: 042
     Dates: start: 20110909
  10. WARFARIN SODIUM [Concomitant]
     Dates: start: 20000626
  11. FESOTERODINE [Concomitant]
     Dates: start: 20091104
  12. ZOPICLONE [Concomitant]
     Dates: start: 20110101

REACTIONS (2)
  - NEUROLOGICAL SYMPTOM [None]
  - POLYNEUROPATHY [None]
